FAERS Safety Report 17400418 (Version 1)
Quarter: 2020Q1

REPORT INFORMATION
  Report Type: Spontaneous
  Country: US (occurrence: US)
  Receive Date: 20200125
  Receipt Date: 20200125
  Transmission Date: 20200409
  Serious: Yes (Hospitalization)
  Sender: FDA-Public Use
  Company Number: None

PATIENT
  Age: 53 Year
  Sex: Male
  Weight: 84 kg

DRUGS (5)
  1. IFOSAFAMIDE [Suspect]
     Active Substance: IFOSFAMIDE
     Dates: end: 20191206
  2. TAXOL [Suspect]
     Active Substance: PACLITAXEL
     Dates: end: 20191206
  3. CARBOPLATIN. [Suspect]
     Active Substance: CARBOPLATIN
     Dates: end: 20191228
  4. G-CSF (FILGRASTIM, AMGEN) [Suspect]
     Active Substance: FILGRASTIM
     Dates: end: 20191228
  5. ETOPOSIDE (VP-16) [Suspect]
     Active Substance: ETOPOSIDE
     Dates: end: 20191228

REACTIONS (2)
  - Device related infection [None]
  - Infection [None]

NARRATIVE: CASE EVENT DATE: 20200121
